FAERS Safety Report 9498971 (Version 1)
Quarter: 2013Q3

REPORT INFORMATION
  Report Type: Report from Study
  Country: ES (occurrence: ES)
  Receive Date: 20130904
  Receipt Date: 20130904
  Transmission Date: 20140515
  Serious: Yes (Hospitalization)
  Sender: FDA-Public Use
  Company Number: ES-INCYTE CORPORATION-2013IN001961

PATIENT
  Age: 57 Year
  Sex: Female
  Weight: 79 kg

DRUGS (4)
  1. INC424 [Suspect]
     Indication: MYELOFIBROSIS
     Dosage: 5 MG/12 HRS
     Route: 048
     Dates: start: 20110623
  2. INC424 [Suspect]
     Dosage: UNK
     Dates: start: 20130731
  3. ENOXAPARIN [Concomitant]
     Dosage: UNK
     Dates: start: 20130514
  4. AAS [Concomitant]

REACTIONS (1)
  - Haemoptysis [Recovered/Resolved]
